FAERS Safety Report 15936166 (Version 2)
Quarter: 2021Q2

REPORT INFORMATION
  Report Type: Report from Study
  Country: US (occurrence: US)
  Receive Date: 20190208
  Receipt Date: 20210601
  Transmission Date: 20210716
  Serious: Yes (Other)
  Sender: FDA-Public Use
  Company Number: US-TAKEDA-2019TUS004254

PATIENT
  Age: 64 Year
  Sex: Female
  Weight: 86.17 kg

DRUGS (2)
  1. VEDOLIZUMAB [Suspect]
     Active Substance: VEDOLIZUMAB
     Indication: CROHN^S DISEASE
     Dosage: 300 MILLIGRAM
     Route: 042
  2. LEVOTHYROXINE. [Concomitant]
     Active Substance: LEVOTHYROXINE
     Indication: HYPOTHYROIDISM
     Dosage: UNK
     Route: 048

REACTIONS (7)
  - Subcutaneous abscess [Recovered/Resolved]
  - Spinal operation [Unknown]
  - Psoriasis [Unknown]
  - Blood potassium decreased [Recovered/Resolved]
  - Sinusitis [Recovered/Resolved]
  - Nephrolithiasis [Not Recovered/Not Resolved]
  - Middle ear effusion [Recovered/Resolved]

NARRATIVE: CASE EVENT DATE: 201812
